FAERS Safety Report 13807915 (Version 4)
Quarter: 2018Q1

REPORT INFORMATION
  Report Type: Spontaneous
  Country: KR (occurrence: KR)
  Receive Date: 20170728
  Receipt Date: 20180222
  Transmission Date: 20180508
  Serious: No
  Sender: FDA-Public Use
  Company Number: KR-009507513-1704KOR007536

PATIENT
  Age: 68 Year
  Sex: Male
  Weight: 70.9 kg

DRUGS (33)
  1. EMEND (FOSAPREPITANT DIMEGLUMINE) [Suspect]
     Active Substance: FOSAPREPITANT DIMEGLUMINE
     Dosage: 150 MG, ONCE
     Route: 042
     Dates: start: 20160630, end: 20160630
  2. ALIMTA [Concomitant]
     Active Substance: PEMETREXED DISODIUM
     Dosage: 930 MG, ONCE, CYCLE 3
     Route: 042
     Dates: start: 20160630, end: 20160630
  3. DEXAMETHASONE. [Concomitant]
     Active Substance: DEXAMETHASONE
     Dosage: 4 MG, TWICE DAILY
     Route: 048
     Dates: start: 20160720, end: 20160722
  4. NASERON [Concomitant]
     Dosage: 0.3 MG, ONCE
     Route: 042
     Dates: start: 20160609, end: 20160609
  5. OMACOR [Concomitant]
     Active Substance: OMEGA-3-ACID ETHYL ESTERS
     Indication: HYPERLIPIDAEMIA
     Dosage: 1 CAPSULE, DAILY
     Route: 048
     Dates: start: 2016
  6. EMEND (FOSAPREPITANT DIMEGLUMINE) [Suspect]
     Active Substance: FOSAPREPITANT DIMEGLUMINE
     Dosage: 150 MG, ONCE
     Route: 042
     Dates: start: 20160609, end: 20160609
  7. DEXAMETHASONE. [Concomitant]
     Active Substance: DEXAMETHASONE
     Dosage: 4 MG, TWICE DAILY
     Route: 048
     Dates: start: 20160608, end: 20160610
  8. NASERON [Concomitant]
     Dosage: 0.3 MG, ONCE
     Route: 042
     Dates: start: 20160721, end: 20160721
  9. CISPLAN [Concomitant]
     Active Substance: CISPLATIN
     Dosage: 140 MG, ONCE, CYCLE 3 (STRENGTH: 50MG/100ML)
     Route: 042
     Dates: start: 20160630, end: 20160630
  10. DEXAMETHASONE. [Concomitant]
     Active Substance: DEXAMETHASONE
     Indication: PREMEDICATION
     Dosage: 4 MG, TWICE DAILY
     Route: 048
     Dates: start: 20160519, end: 20160521
  11. LIPITOR [Concomitant]
     Active Substance: ATORVASTATIN CALCIUM
     Indication: HYPERLIPIDAEMIA
     Dosage: 10 MG (1 TABLET), QD
     Route: 048
     Dates: start: 2016
  12. CISPLAN [Concomitant]
     Active Substance: CISPLATIN
     Dosage: 139 MG, ONCE, CYCLE 2 (STRENGTH: 50MG/100ML)
     Route: 042
     Dates: start: 20160609, end: 20160609
  13. FOLIC ACID. [Concomitant]
     Active Substance: FOLIC ACID
     Indication: PROPHYLAXIS
     Dosage: 1 TABLET (1MG), DAILY
     Route: 048
     Dates: start: 201605
  14. PLAVIX [Concomitant]
     Active Substance: CLOPIDOGREL BISULFATE
     Indication: HYPERLIPIDAEMIA
     Dosage: 75 MG (1 TABLET), DAILY
     Route: 048
     Dates: start: 2016
  15. DUPHALAC [Concomitant]
     Active Substance: LACTULOSE
     Indication: CONSTIPATION PROPHYLAXIS
     Dosage: 1 PK (15ML), DAILY
     Route: 048
     Dates: start: 20160609, end: 20160728
  16. EMEND (FOSAPREPITANT DIMEGLUMINE) [Suspect]
     Active Substance: FOSAPREPITANT DIMEGLUMINE
     Dosage: 150 MG, ONCE
     Route: 042
     Dates: start: 20160721, end: 20160721
  17. ALIMTA [Concomitant]
     Active Substance: PEMETREXED DISODIUM
     Dosage: 935 MG, ONCE, CYCLE 4
     Route: 042
     Dates: start: 20160721, end: 20160721
  18. CISPLAN [Concomitant]
     Active Substance: CISPLATIN
     Indication: LUNG ADENOCARCINOMA STAGE IV
     Dosage: 139 MG, ONCE, CYCLE 1 (STRENGTH: 50MG/100ML)
     Route: 042
     Dates: start: 20160520, end: 20160520
  19. CISPLAN [Concomitant]
     Active Substance: CISPLATIN
     Dosage: 140 MG, ONCE, CYCLE 4 (STRENGTH: 50MG/100ML)
     Route: 042
     Dates: start: 20160721, end: 20160721
  20. NASERON [Concomitant]
     Indication: PREMEDICATION
     Dosage: 0.3 MG, ONCE
     Route: 042
     Dates: start: 20160520, end: 20160520
  21. MADIPINE [Concomitant]
     Indication: HYPERTENSION
     Dosage: 10 MG (1 TABLET), QD
     Route: 048
     Dates: start: 2016
  22. GLYCOMIN (METFORMIN HYDROCHLORIDE) [Concomitant]
     Indication: DIABETES MELLITUS
     Dosage: 250 MG (1 TABLET), QD
     Route: 048
  23. ALIMTA [Concomitant]
     Active Substance: PEMETREXED DISODIUM
     Indication: LUNG ADENOCARCINOMA STAGE IV
     Dosage: 925 MG, ONCE, CYCLE 1
     Route: 042
     Dates: start: 20160520, end: 20160520
  24. ALIMTA [Concomitant]
     Active Substance: PEMETREXED DISODIUM
     Dosage: 925 MG, ONCE, CYCLE 2
     Route: 042
     Dates: start: 20160609, end: 20160609
  25. MAGO [Concomitant]
     Indication: CONSTIPATION PROPHYLAXIS
     Dosage: 250 MG (1 CAPSULE), THREE TIMES DAILY
     Route: 048
     Dates: start: 20160609, end: 20160728
  26. EMEND (FOSAPREPITANT DIMEGLUMINE) [Suspect]
     Active Substance: FOSAPREPITANT DIMEGLUMINE
     Indication: PROPHYLAXIS OF NAUSEA AND VOMITING
     Dosage: 150 MG, ONCE
     Route: 042
     Dates: start: 20160520, end: 20160520
  27. DEXAMETHASONE. [Concomitant]
     Active Substance: DEXAMETHASONE
     Dosage: 4 MG, TWICE DAILY
     Route: 048
     Dates: start: 20160629, end: 20160701
  28. NASERON [Concomitant]
     Dosage: 0.3 MG, ONCE
     Route: 042
     Dates: start: 20160630, end: 20160630
  29. TYLENOL [Concomitant]
     Active Substance: ACETAMINOPHEN
     Indication: PROPHYLAXIS
     Dosage: 650 MG (1 TABLET), 3 TIMES DAILY (OR AS A REQUIRED)
     Route: 048
     Dates: start: 20160521, end: 201607
  30. ACTINAMIDE [Concomitant]
     Indication: PREMEDICATION
     Dosage: 1 MG, DAILY (7DAYS BEFORE EACH CHEMOTHERAPY, STRENGTH: 1000MCG/2ML)
     Route: 030
     Dates: start: 20160514, end: 20160714
  31. TYLENOL [Concomitant]
     Active Substance: ACETAMINOPHEN
     Indication: PAIN PROPHYLAXIS
  32. HEXAMEDINE [Concomitant]
     Indication: PROPHYLAXIS
     Dosage: 3 BTL, PRN (ROUTE OF ADMINSITRATION: GARGLE)
     Route: 050
     Dates: start: 20160521, end: 201607
  33. COUGH SYRUP (AMMONIUM CHLORIDE (+) CHLORPHENIRAMINE MALEATE (+) DIHYDR [Concomitant]
     Indication: PROPHYLAXIS
     Dosage: 20 ML, TID
     Route: 048
     Dates: start: 20160516, end: 20160728

REACTIONS (1)
  - Dermatitis [Not Recovered/Not Resolved]

NARRATIVE: CASE EVENT DATE: 20160711
